FAERS Safety Report 6166896-0 (Version None)
Quarter: 2009Q2

REPORT INFORMATION
  Report Type: 
  Country: None (occurrence: None)
  Receive Date: 20090424
  Receipt Date: 20090420
  Transmission Date: 20091009
  Serious: Yes (Other)
  Sender: FDA-Public Use
  Company Number: B0570577A

PATIENT
  Age: 75 Year
  Sex: Female
  Weight: 76 kg

DRUGS (9)
  1. AUGMENTIN '125' [Suspect]
     Indication: LOWER RESPIRATORY TRACT INFECTION
     Route: 042
     Dates: start: 20090318, end: 20090322
  2. AUGMENTIN '125' [Suspect]
     Indication: LOWER RESPIRATORY TRACT INFECTION
     Dosage: 1125MG PER DAY
     Route: 048
     Dates: start: 20090323, end: 20090324
  3. AMOXICILLIN [Suspect]
     Indication: LOWER RESPIRATORY TRACT INFECTION
     Dosage: 750MG PER DAY
     Route: 048
     Dates: start: 20090325, end: 20090326
  4. KEPPRA [Suspect]
     Indication: EPILEPSY
     Dosage: 2.5G PER DAY
     Route: 042
  5. ESOMEPRAZOLE [Suspect]
     Route: 042
  6. FERROUS FUMARATE [Concomitant]
     Route: 048
  7. LAMOTRIGINE [Concomitant]
     Dosage: 300MG PER DAY
     Route: 048
  8. SENNA [Concomitant]
     Route: 048
  9. LANSOPRAZOLE [Concomitant]
     Route: 048

REACTIONS (3)
  - DRUG INTERACTION [None]
  - JAUNDICE [None]
  - LIVER FUNCTION TEST ABNORMAL [None]
